FAERS Safety Report 10466735 (Version 1)
Quarter: 2014Q3

REPORT INFORMATION
  Report Type: Spontaneous
  Country: None (occurrence: US)
  Receive Date: 20140922
  Receipt Date: 20140922
  Transmission Date: 20150326
  Serious: No
  Sender: FDA-Public Use
  Company Number: US-ACORDA-ACO_33052_2012

PATIENT
  Sex: Female

DRUGS (1)
  1. TIZANIDINE CAPSULE (TIZANIDINE HYDROCHLORIDE) CAPSULE [Suspect]
     Active Substance: TIZANIDINE
     Indication: PRODUCT USED FOR UNKNOWN INDICATION
     Dosage: UNK

REACTIONS (2)
  - Medication residue present [Unknown]
  - Wrong technique in drug usage process [Unknown]
